FAERS Safety Report 9326092 (Version 1)
Quarter: 2013Q2

REPORT INFORMATION
  Report Type: Spontaneous
  Country: US (occurrence: None)
  Receive Date: 20130603
  Receipt Date: 20130603
  Transmission Date: 20140414
  Serious: Yes (Hospitalization)
  Sender: FDA-Public Use
  Company Number: None

PATIENT
  Age: 78 Year
  Sex: Male

DRUGS (12)
  1. ZYTIGA [Suspect]
     Indication: PROSTATE CANCER
     Dosage: 1000MG QD PO
     Route: 048
     Dates: start: 201304
  2. ASPIRIN [Concomitant]
  3. CALCIUM+ [Concomitant]
  4. VITAMIN D [Concomitant]
  5. WARFARIN [Concomitant]
  6. PLAVIX [Concomitant]
  7. LIPITOR [Concomitant]
  8. PRILOSEC [Concomitant]
  9. FLOMAX [Concomitant]
  10. PREDNISONE [Concomitant]
  11. EXGEVA [Concomitant]
  12. LUPRON [Concomitant]

REACTIONS (6)
  - Nausea [None]
  - Pyrexia [None]
  - Dehydration [None]
  - Food poisoning [None]
  - Fatigue [None]
  - Delirium [None]
